FAERS Safety Report 25525874 (Version 2)
Quarter: 2025Q3

REPORT INFORMATION
  Report Type: Spontaneous
  Country: AU (occurrence: AU)
  Receive Date: 20250707
  Receipt Date: 20250810
  Transmission Date: 20251021
  Serious: Yes (Death, Other)
  Sender: ALEXION PHARMACEUTICALS
  Company Number: AU-ASTRAZENECA-202507OCE001555AU

PATIENT
  Age: 33 Year
  Sex: Female

DRUGS (6)
  1. DAPAGLIFLOZIN [Suspect]
     Active Substance: DAPAGLIFLOZIN
     Indication: Dilated cardiomyopathy
     Dosage: 10 MILLIGRAM, QD
     Route: 065
  2. BISOPROLOL FUMARATE [Suspect]
     Active Substance: BISOPROLOL FUMARATE
     Indication: Dilated cardiomyopathy
     Dosage: 10 MILLIGRAM, QD
     Route: 065
  3. FUROSEMIDE [Suspect]
     Active Substance: FUROSEMIDE
     Indication: Dilated cardiomyopathy
     Dosage: 40 MILLIGRAM, QD
     Route: 065
  4. IVABRADINE [Suspect]
     Active Substance: IVABRADINE
     Indication: Dilated cardiomyopathy
     Dosage: 5 MILLIGRAM, BID
     Route: 065
  5. SACUBITRIL\VALSARTAN [Suspect]
     Active Substance: SACUBITRIL\VALSARTAN
     Indication: Dilated cardiomyopathy
     Dosage: 1 DOSAGE FORM, BID
     Route: 065
  6. SPIRONOLACTONE [Suspect]
     Active Substance: SPIRONOLACTONE
     Indication: Dilated cardiomyopathy
     Dosage: 25 MILLIGRAM, QD
     Route: 065

REACTIONS (4)
  - Exposure during pregnancy [Unknown]
  - Foetal death [Fatal]
  - Foetal exposure during pregnancy [Unknown]
  - Foetal malformation [Unknown]

NARRATIVE: CASE EVENT DATE: 20250101
